FAERS Safety Report 5294532-4 (Version None)
Quarter: 2007Q2

REPORT INFORMATION
  Report Type: 
  Country: None (occurrence: None)
  Receive Date: 20070409
  Receipt Date: 20070409
  Transmission Date: 20071010
  Serious: Yes (Other)
  Sender: FDA-Public Use
  Company Number: None

PATIENT
  Age: 89 Year
  Sex: Female
  Weight: 47.1741 kg

DRUGS (1)
  1. SENOKOT [Suspect]
     Indication: CONSTIPATION
     Dosage: 2 TABLETS DAILY PO
     Route: 048
     Dates: start: 20070320, end: 20070405

REACTIONS (3)
  - ABDOMINAL PAIN UPPER [None]
  - ADVERSE DRUG REACTION [None]
  - GASTROINTESTINAL DISORDER [None]
